FAERS Safety Report 18495920 (Version 1)
Quarter: 2020Q4

REPORT INFORMATION
  Report Type: Spontaneous
  Country: US (occurrence: US)
  Receive Date: 20201112
  Receipt Date: 20201112
  Transmission Date: 20210114
  Serious: Yes (Hospitalization)
  Sender: FDA-Public Use
  Company Number: None

PATIENT
  Age: 77 Year

DRUGS (35)
  1. FLORASTOR [Concomitant]
     Active Substance: SACCHAROMYCES CEREVISIAE
  2. FOLBEE [Concomitant]
     Active Substance: CYANOCOBALAMIN\FOLIC ACID\PYRIDOXINE HYDROCHLORIDE
  3. POT CHLORIDE ER [Concomitant]
  4. ROSUVASTATIN. [Concomitant]
     Active Substance: ROSUVASTATIN
  5. URSODIOL. [Concomitant]
     Active Substance: URSODIOL
  6. ESBRIET [Suspect]
     Active Substance: PIRFENIDONE
     Indication: IDIOPATHIC PULMONARY FIBROSIS
     Route: 048
     Dates: start: 20180108
  7. AZEL/FLUTIC SPR [Concomitant]
  8. FLUCONAZOLE. [Concomitant]
     Active Substance: FLUCONAZOLE
  9. ROPINIROLE. [Concomitant]
     Active Substance: ROPINIROLE
  10. BUSPIRONE [Concomitant]
     Active Substance: BUSPIRONE HYDROCHLORIDE
  11. CYANOCOBALAM [Concomitant]
     Active Substance: CYANOCOBALAMIN
  12. LOSARTAN POT [Concomitant]
     Active Substance: LOSARTAN POTASSIUM
  13. LUMIGAN [Concomitant]
     Active Substance: BIMATOPROST
  14. METRONIDAZOL [Concomitant]
     Active Substance: METRONIDAZOLE
  15. OMEPRAZOLE. [Concomitant]
     Active Substance: OMEPRAZOLE
  16. ONDANSETRON [Concomitant]
     Active Substance: ONDANSETRON
  17. PREDNISONE. [Concomitant]
     Active Substance: PREDNISONE
  18. CYCLOBENZAPR [Concomitant]
     Active Substance: CYCLOBENZAPRINE
  19. KLOR-CON EXTENDED-RELEASE [Concomitant]
     Active Substance: POTASSIUM CHLORIDE
  20. NITROGLYCRN SPR. [Concomitant]
  21. POT CL MICRO ER [Concomitant]
  22. MATZIM LA [Concomitant]
     Active Substance: DILTIAZEM HYDROCHLORIDE
  23. TRIAMCINOLON CRE [Concomitant]
  24. FINACEA [Concomitant]
     Active Substance: AZELAIC ACID
  25. TRELEGY ELLIPT [Concomitant]
  26. BENZONATATE. [Concomitant]
     Active Substance: BENZONATATE
  27. DIGOXIN. [Concomitant]
     Active Substance: DIGOXIN
  28. DILTIAZEM ER [Concomitant]
     Active Substance: DILTIAZEM
  29. ELIQUIS [Concomitant]
     Active Substance: APIXABAN
  30. JANUMET XR [Concomitant]
     Active Substance: METFORMIN HYDROCHLORIDE\SITAGLIPTIN PHOSPHATE
  31. MAGNESIUM-OX [Concomitant]
  32. METOPROL TAR [Concomitant]
  33. MONTELUKAST [Concomitant]
     Active Substance: MONTELUKAST SODIUM
  34. AZELASTINE. [Concomitant]
     Active Substance: AZELASTINE HYDROCHLORIDE
  35. BUMETANIDE. [Concomitant]
     Active Substance: BUMETANIDE

REACTIONS (2)
  - Hypertension [None]
  - Chest pain [None]

NARRATIVE: CASE EVENT DATE: 20201011
